FAERS Safety Report 14186648 (Version 1)
Quarter: 2017Q4

REPORT INFORMATION
  Report Type: Spontaneous
  Country: US (occurrence: None)
  Receive Date: 20171112
  Receipt Date: 20171112
  Transmission Date: 20180321
  Serious: Yes (Other)
  Sender: FDA-Public Use
  Company Number: None

PATIENT
  Age: 30 Year
  Sex: Female

DRUGS (1)
  1. MYCOPHENOLATE [Suspect]
     Active Substance: MYCOPHENOLIC ACID
     Indication: HYPERLIPIDAEMIA
     Route: 048
     Dates: start: 20170501

REACTIONS (3)
  - Arthralgia [None]
  - Alopecia [None]
  - Onychoclasis [None]

NARRATIVE: CASE EVENT DATE: 20170928
